FAERS Safety Report 17334346 (Version 5)
Quarter: 2020Q2

REPORT INFORMATION
  Report Type: Report from Study
  Country: None (occurrence: GB)
  Receive Date: 20200128
  Receipt Date: 20200525
  Transmission Date: 20200713
  Serious: Yes (Other)
  Sender: FDA-Public Use
  Company Number: GB-ABBVIE-20K-167-3247021-00

PATIENT
  Age: 48 Year
  Sex: Female

DRUGS (1)
  1. SKYRIZI [Suspect]
     Active Substance: RISANKIZUMAB-RZAA
     Indication: PSORIASIS
     Route: 058

REACTIONS (16)
  - Anaphylactic reaction [Recovering/Resolving]
  - Panic reaction [Recovering/Resolving]
  - Dyspnoea [Unknown]
  - Hypoaesthesia oral [Recovering/Resolving]
  - Dry mouth [Recovering/Resolving]
  - Paraesthesia [Recovering/Resolving]
  - Tongue erythema [Recovering/Resolving]
  - Migraine [Not Recovered/Not Resolved]
  - Peripheral coldness [Recovering/Resolving]
  - Blood pressure increased [Recovering/Resolving]
  - Dyspnoea [Recovered/Resolved]
  - Somnolence [Unknown]
  - Ear discomfort [Recovering/Resolving]
  - Lip swelling [Recovering/Resolving]
  - Fatigue [Unknown]
  - Vision blurred [Not Recovered/Not Resolved]

NARRATIVE: CASE EVENT DATE: 20200514
